FAERS Safety Report 15764111 (Version 1)
Quarter: 2018Q4

REPORT INFORMATION
  Report Type: Spontaneous
  Country: DE (occurrence: DE)
  Receive Date: 20181227
  Receipt Date: 20181227
  Transmission Date: 20190205
  Serious: Yes (Death, Hospitalization)
  Sender: FDA-Public Use
  Company Number: DE-ROCHE-2235416

PATIENT
  Age: 73 Year
  Sex: Female

DRUGS (1)
  1. RITUXIMAB. [Suspect]
     Active Substance: RITUXIMAB
     Indication: RHEUMATOID ARTHRITIS
     Route: 042

REACTIONS (7)
  - Superinfection bacterial [Unknown]
  - Septic shock [Fatal]
  - B-lymphocyte count decreased [Unknown]
  - Secondary immunodeficiency [Unknown]
  - Sepsis [Unknown]
  - Vulvovaginal ulceration [Unknown]
  - Immunodeficiency [Unknown]
